FAERS Safety Report 24689459 (Version 1)
Quarter: 2024Q4

REPORT INFORMATION
  Report Type: Spontaneous
  Country: DE (occurrence: DE)
  Receive Date: 20241203
  Receipt Date: 20241203
  Transmission Date: 20250115
  Serious: Yes (Other)
  Sender: CELLTRION
  Company Number: DE-ABBVIE-5779167

PATIENT

DRUGS (1)
  1. ADALIMUMAB [Suspect]
     Active Substance: ADALIMUMAB
     Indication: Spondylitis
     Dosage: EVERY 3-4 WEEKS
     Route: 058

REACTIONS (5)
  - Radius fracture [Unknown]
  - Osteomalacia [Unknown]
  - Spinal osteoarthritis [Unknown]
  - Fall [Unknown]
  - Osteopenia [Unknown]

NARRATIVE: CASE EVENT DATE: 20230101
